FAERS Safety Report 9175962 (Version 2)
Quarter: 2013Q2

REPORT INFORMATION
  Report Type: Spontaneous
  Country: US (occurrence: US)
  Receive Date: 20130320
  Receipt Date: 20130508
  Transmission Date: 20140414
  Serious: Yes (Other)
  Sender: FDA-Public Use
  Company Number: US-009507513-1303USA006419

PATIENT
  Age: 21 Year
  Sex: Female

DRUGS (3)
  1. VICTRELIS [Suspect]
     Indication: HEPATITIS C
     Dosage: 800 MG, THREE TIMES DAILY
     Route: 048
     Dates: start: 20120912, end: 20130218
  2. RIBAPAK [Suspect]
     Dosage: UNK
     Dates: start: 20120814
  3. PEGASYS [Suspect]
     Dosage: UNK
     Dates: start: 20120814

REACTIONS (2)
  - Convulsion [Unknown]
  - Convulsion [Unknown]
